FAERS Safety Report 25977106 (Version 3)
Quarter: 2025Q4

REPORT INFORMATION
  Report Type: Report from Study
  Country: US (occurrence: US)
  Receive Date: 20251030
  Receipt Date: 20251229
  Transmission Date: 20260118
  Serious: Yes (Other)
  Sender: DECIPHERA PHARMACEUTICALS
  Company Number: US-DECIPHERA PHARMACEUTICALS LLC-2025US001320

PATIENT
  Age: 38 Year
  Sex: Male

DRUGS (4)
  1. ROMVIMZA [Suspect]
     Active Substance: VIMSELTINIB
     Indication: Desmoid tumour
     Dosage: 30 MILLIGRAM, TWICE WEEKLY (TUESDAY, FRIDAY)
     Dates: start: 20250807, end: 202510
  2. ROMVIMZA [Suspect]
     Active Substance: VIMSELTINIB
     Dosage: 30 MILLIGRAM, TWICE WEEKLY (TUESDAY, FRIDAY)
     Dates: start: 202510, end: 202510
  3. ROMVIMZA [Suspect]
     Active Substance: VIMSELTINIB
     Dosage: 30 MILLIGRAM, TWICE WEEKLY (TUESDAY, FRIDAY)
     Dates: start: 202510, end: 202512
  4. ROMVIMZA [Suspect]
     Active Substance: VIMSELTINIB
     Dosage: 30 MILLIGRAM, TWICE WEEKLY (TUESDAY, FRIDAY)
     Dates: start: 202512

REACTIONS (8)
  - Immunodeficiency [Unknown]
  - Illness [Not Recovered/Not Resolved]
  - Eye swelling [Not Recovered/Not Resolved]
  - White blood cell count decreased [Not Recovered/Not Resolved]
  - Fatigue [Not Recovered/Not Resolved]
  - Stomatitis [Unknown]
  - Product use in unapproved indication [Unknown]
  - Product dose omission issue [Unknown]

NARRATIVE: CASE EVENT DATE: 20250101
